FAERS Safety Report 5775333-7 (Version None)
Quarter: 2008Q2

REPORT INFORMATION
  Report Type: 
  Country: None (occurrence: None)
  Receive Date: 20080616
  Receipt Date: 20080616
  Transmission Date: 20081010
  Serious: Yes (Other)
  Sender: FDA-Public Use
  Company Number: None

PATIENT
  Age: 63 Year
  Sex: Male
  Weight: 99.7913 kg

DRUGS (2)
  1. CADUET [Suspect]
     Indication: BLOOD CHOLESTEROL INCREASED
     Dosage: ONCE A DAY PO
     Route: 048
     Dates: start: 20070601, end: 20080118
  2. CADUET [Suspect]
     Indication: HYPERTENSION
     Dosage: ONCE A DAY PO
     Route: 048
     Dates: start: 20070601, end: 20080118

REACTIONS (1)
  - COUGH [None]
